FAERS Safety Report 13278883 (Version 1)
Quarter: 2017Q1

REPORT INFORMATION
  Report Type: Spontaneous
  Country: IN (occurrence: IN)
  Receive Date: 20170228
  Receipt Date: 20170228
  Transmission Date: 20170428
  Serious: Yes (Other)
  Sender: FDA-Public Use
  Company Number: IN-IMPAX LABORATORIES, INC-2017-IPXL-00448

PATIENT
  Age: 19 Year
  Sex: Female

DRUGS (2)
  1. LIGNOCAINE [Concomitant]
     Active Substance: LIDOCAINE HYDROCHLORIDE
     Indication: INFILTRATION ANAESTHESIA
     Dosage: PRE-MIXED SOLUTION; 1%, SINGLE
     Route: 050
     Dates: start: 2010
  2. ADRENACLICK [Suspect]
     Active Substance: EPINEPHRINE
     Indication: INFILTRATION ANAESTHESIA
     Dosage: PRE-MIXED SOLUTION;1:100000 DILUTION, SINGLE
     Route: 050
     Dates: start: 2010

REACTIONS (1)
  - Dry gangrene [Recovered/Resolved]

NARRATIVE: CASE EVENT DATE: 201005
